FAERS Safety Report 4868656-7 (Version None)
Quarter: 2005Q4

REPORT INFORMATION
  Report Type: 
  Country: None (occurrence: None)
  Receive Date: 20051223
  Receipt Date: 20051207
  Transmission Date: 20060501
  Serious: Yes (Hospitalization)
  Sender: FDA-Public Use
  Company Number: 2005EU002728

PATIENT
  Age: 12 Year
  Sex: Male

DRUGS (2)
  1. PROGRAF [Suspect]
     Indication: BONE MARROW TRANSPLANT
     Dosage: SEE IMAGE
     Route: 042
     Dates: start: 20050802, end: 20051021
  2. PROGRAF [Suspect]
     Indication: BONE MARROW TRANSPLANT
     Dosage: SEE IMAGE
     Route: 042
     Dates: start: 20051029, end: 20051115

REACTIONS (5)
  - GRAFT VERSUS HOST DISEASE IN INTESTINE [None]
  - GRAFT VERSUS HOST DISEASE IN LIVER [None]
  - GRAFT VERSUS HOST DISEASE IN SKIN [None]
  - HAEMOLYTIC ANAEMIA [None]
  - NEUROTOXICITY [None]
